FAERS Safety Report 6655902-2 (Version None)
Quarter: 2010Q1

REPORT INFORMATION
  Report Type: 
  Country: None (occurrence: None)
  Receive Date: 20100317
  Receipt Date: 20091218
  Transmission Date: 20100710
  Serious: No
  Sender: FDA-Public Use
  Company Number: DSA_42234_2009

PATIENT
  Sex: Female

DRUGS (2)
  1. XENAZINE [Suspect]
     Indication: DYSKINESIA
     Dosage: (25 MG 1/2 TABLET Q AM AND 1 TABLET Q PM ORAL), (25 MG BID ORAL)
     Route: 048
     Dates: start: 20090101, end: 20090101
  2. XENAZINE [Suspect]
     Indication: DYSKINESIA
     Dosage: (25 MG 1/2 TABLET Q AM AND 1 TABLET Q PM ORAL), (25 MG BID ORAL)
     Route: 048
     Dates: start: 20090101

REACTIONS (4)
  - CONDITION AGGRAVATED [None]
  - DRUG INEFFECTIVE FOR UNAPPROVED INDICATION [None]
  - MUSCLE TIGHTNESS [None]
  - SOMNOLENCE [None]
